FAERS Safety Report 4371901-8 (Version None)
Quarter: 2004Q2

REPORT INFORMATION
  Report Type: 
  Country: None (occurrence: None)
  Receive Date: 20040602
  Receipt Date: 20040602
  Transmission Date: 20050107
  Serious: Yes (Life-Threatening, Hospitalization)
  Sender: FDA-Public Use
  Company Number: None

PATIENT
  Age: 40 Year
  Sex: Female
  Weight: 100 kg

DRUGS (7)
  1. LINEZOLID [Suspect]
     Indication: BACTERAEMIA
     Dates: start: 20040303, end: 20040308
  2. SERTRALINE HCL [Suspect]
     Indication: DEPRESSION
     Dosage: 150 MG QD ORAL
     Route: 048
     Dates: start: 20040101, end: 20040308
  3. TACROLIMUS [Concomitant]
  4. PREDNISONE [Concomitant]
  5. INSULIN [Concomitant]
  6. AMITRIPTYLINE HCL [Concomitant]
  7. METOPROLOL TARTRATE [Concomitant]

REACTIONS (1)
  - SEROTONIN SYNDROME [None]
